FAERS Safety Report 5070443-4 (Version None)
Quarter: 2006Q3

REPORT INFORMATION
  Report Type: 
  Country: None (occurrence: None)
  Receive Date: 20060714
  Receipt Date: 20060417
  Transmission Date: 20061208
  Serious: No
  Sender: FDA-Public Use
  Company Number: 2006SP001727

PATIENT
  Age: 81 Year
  Sex: Male
  Weight: 58.9676 kg

DRUGS (4)
  1. LUNESTA [Suspect]
     Indication: INSOMNIA
     Dosage: SEE IMAGE
     Route: 048
     Dates: start: 20060321, end: 20060401
  2. LUNESTA [Suspect]
     Indication: INSOMNIA
     Dosage: SEE IMAGE
     Route: 048
     Dates: start: 20060416, end: 20060416
  3. VYTORIN [Concomitant]
  4. MICARDIS [Concomitant]

REACTIONS (2)
  - SOMNOLENCE [None]
  - THROAT IRRITATION [None]
